FAERS Safety Report 9443386 (Version 4)
Quarter: 2013Q3

REPORT INFORMATION
  Report Type: Report from Study
  Country: IN (occurrence: IN)
  Receive Date: 20130806
  Receipt Date: 20130827
  Transmission Date: 20140515
  Serious: Yes (Hospitalization)
  Sender: FDA-Public Use
  Company Number: PHHY2013IN081999

PATIENT
  Age: 21 Year
  Sex: Female

DRUGS (39)
  1. SIMULECT [Suspect]
     Indication: RENAL TRANSPLANT
     Dosage: 20 MG, UNK
     Dates: start: 20130611
  2. CELLCEPT [Suspect]
     Indication: IMMUNOSUPPRESSION
  3. PANGRAF [Concomitant]
     Indication: IMMUNOSUPPRESSION
  4. PREDNISOLONE [Concomitant]
     Indication: IMMUNOSUPPRESSION
  5. PANTOCID (PANTOPRAZOLE SODIUM) [Concomitant]
     Dosage: 1 DF, BID (1-0-1)
  6. DOLOPAR [Concomitant]
     Dosage: 1 DF, QID
  7. BACTRIM DS [Concomitant]
     Dosage: 1 DF, BID (1-0-1)
  8. SIZODON [Concomitant]
     Dosage: 1 DF, QD (0-0-1)
  9. ZOLFRESH [Concomitant]
     Dosage: 1 DF, QD (0-0-1)
  10. DALACIN C//CLINDAMYCIN [Concomitant]
     Dosage: 1 DF, BID
  11. VICKS                              /00384601/ [Concomitant]
     Dosage: UNK UKN, UNK
  12. DERIPHYLLIN [Concomitant]
  13. AMLOKIND [Concomitant]
  14. VOCOZOLE//ECONAZOLE NITRATE [Concomitant]
  15. INFLAGO [Concomitant]
  16. DOMRAB [Concomitant]
  17. BEVON                              /07348401/ [Concomitant]
  18. LISTERINE                          /00178701/ [Concomitant]
  19. MYCEPT [Concomitant]
     Dosage: UNK UKN, UNK
  20. PANIMUN BIORAL [Concomitant]
  21. VANCOMYCIN [Concomitant]
  22. GENTAMYCEN [Concomitant]
  23. BUPRIGESIC [Concomitant]
  24. PARACETAMOL [Concomitant]
  25. CORT-S [Concomitant]
  26. NODOSIS [Concomitant]
  27. BIOPIPER TZ [Concomitant]
  28. SERENACE [Concomitant]
  29. PHENERGAN                          /00404701/ [Concomitant]
  30. FORTWIN//PENTAZOCINE HYDROCHLORIDE [Concomitant]
  31. ULTRAM                             /01573601/ [Concomitant]
  32. MIKACIN [Concomitant]
  33. EMIGO [Concomitant]
  34. NICARDIA [Concomitant]
  35. OFLOX [Concomitant]
  36. SHELCAL [Concomitant]
  37. TRAMADOL [Concomitant]
  38. WYSOLONE [Concomitant]
  39. METHYLPREDISOLONE [Concomitant]

REACTIONS (10)
  - Disseminated intravascular coagulation [Recovered/Resolved]
  - Pyrexia [Unknown]
  - Kidney rupture [Unknown]
  - Complications of transplanted kidney [Unknown]
  - Haematoma [Unknown]
  - Abdominal pain [Unknown]
  - Back pain [Unknown]
  - Kidney transplant rejection [Unknown]
  - Urine output decreased [Unknown]
  - Renal tubular necrosis [Unknown]
